FAERS Safety Report 6991651-9 (Version None)
Quarter: 2010Q3

REPORT INFORMATION
  Report Type: 
  Country: None (occurrence: None)
  Receive Date: 20100917
  Receipt Date: 20100908
  Transmission Date: 20110219
  Serious: Yes (Other)
  Sender: FDA-Public Use
  Company Number: US-TEVA-247701USA

PATIENT
  Age: 67 Year
  Sex: Female

DRUGS (11)
  1. ESTRADIOL TABLETS, USP, 0.5 MG, 1 MG, 2 MG [Suspect]
     Dosage: 2 MG TABLET (BROKE IN 4 PIECES)
     Route: 048
  2. GLIPIZIDE [Suspect]
     Dates: start: 19960101
  3. GLIPIZIDE [Suspect]
     Indication: TYPE 2 DIABETES MELLITUS
  4. CHROMIUM PICOLINATE [Suspect]
  5. CLONIDINE [Suspect]
     Indication: HYPERTENSION
  6. COLCHICINE [Suspect]
  7. PIOGLITAZONE [Suspect]
     Indication: DIABETES MELLITUS
  8. ROSIGLITAZONE MALEATE [Suspect]
     Indication: DIABETES MELLITUS
  9. TROGLITAZONE [Suspect]
     Indication: DIABETES MELLITUS
  10. ASCORBIC ACID [Concomitant]
  11. METFORMIN [Concomitant]

REACTIONS (10)
  - BLOOD GLUCOSE INCREASED [None]
  - BLOOD PRESSURE INCREASED [None]
  - DIARRHOEA [None]
  - DRUG DISPENSING ERROR [None]
  - DRUG INEFFECTIVE [None]
  - FATIGUE [None]
  - GLYCOSYLATED HAEMOGLOBIN INCREASED [None]
  - NEUROPATHY PERIPHERAL [None]
  - OEDEMA [None]
  - TREMOR [None]
